FAERS Safety Report 24362186 (Version 1)
Quarter: 2024Q3

REPORT INFORMATION
  Report Type: Spontaneous
  Country: US (occurrence: None)
  Receive Date: 20240924
  Receipt Date: 20240924
  Transmission Date: 20241016
  Serious: Yes (Hospitalization)
  Sender: Public
  Company Number: None

PATIENT
  Age: 47 Year
  Sex: Female
  Weight: 142.8 kg

DRUGS (3)
  1. PIPERACILLIN AND TAZOBACTAM [Suspect]
     Active Substance: PIPERACILLIN SODIUM\TAZOBACTAM SODIUM
     Indication: Staphylococcal infection
     Dosage: 13.5 G GRAM(S) CONTINUOUSLY INTRAVENOUS DRIP
     Route: 041
     Dates: start: 20240809, end: 20240814
  2. PIPERACILLIN AND TAZOBACTAM [Suspect]
     Active Substance: PIPERACILLIN SODIUM\TAZOBACTAM SODIUM
     Indication: Pseudomonas infection
  3. VANCOMYCIN [Suspect]
     Active Substance: VANCOMYCIN
     Dosage: 1 G GRAM TWICE A DAY INTRAVENOUS?
     Route: 042
     Dates: start: 20240809, end: 20240814

REACTIONS (5)
  - Rash [None]
  - Skin warm [None]
  - Nausea [None]
  - Refusal of treatment by patient [None]
  - Drug hypersensitivity [None]

NARRATIVE: CASE EVENT DATE: 20240814
